FAERS Safety Report 6048142-1 (Version None)
Quarter: 2009Q1

REPORT INFORMATION
  Report Type: 
  Country: None (occurrence: None)
  Receive Date: 20090123
  Receipt Date: 20090115
  Transmission Date: 20090719
  Serious: Yes (Hospitalization)
  Sender: FDA-Public Use
  Company Number: US-BAYER-200910156BCC

PATIENT
  Age: 82 Year
  Sex: Female
  Weight: 71 kg

DRUGS (13)
  1. ALEVE [Suspect]
     Indication: DRUG USE FOR UNKNOWN INDICATION
     Dosage: TOTAL DAILY DOSE: 880 MG  UNIT DOSE: 220 MG
     Dates: start: 20081101
  2. AMLODIPINE BESYLATE [Concomitant]
  3. ASCORBIC ACID [Concomitant]
  4. CITALOPRAM HYDROBROMIDE [Concomitant]
  5. MULTI-VITAMINS [Concomitant]
  6. LEVOTHYROXINE [Concomitant]
  7. COZAAR [Concomitant]
  8. NADOLOL [Concomitant]
  9. ONE A DAY VITAMIN 50 PLUS [Concomitant]
  10. NEXIUM [Concomitant]
     Dosage: TOTAL DAILY DOSE: 80 MG  UNIT DOSE: 40 MG
  11. SIMVASTATIN [Concomitant]
  12. COUMADIN [Concomitant]
  13. COUMADIN [Concomitant]

REACTIONS (3)
  - HAEMORRHAGE [None]
  - PRESYNCOPE [None]
  - ULCER HAEMORRHAGE [None]
